FAERS Safety Report 19611214 (Version 1)
Quarter: 2021Q3

REPORT INFORMATION
  Report Type: Spontaneous
  Country: US (occurrence: US)
  Receive Date: 20210726
  Receipt Date: 20210726
  Transmission Date: 20211014
  Serious: Yes (Other)
  Sender: FDA-Public Use
  Company Number: US-PFIZER INC-2021194647

PATIENT
  Age: 84 Year
  Sex: Female
  Weight: 70.31 kg

DRUGS (5)
  1. COUMADIN [Concomitant]
     Active Substance: WARFARIN SODIUM
     Indication: AORTIC VALVE REPLACEMENT
     Dosage: 5 MG, DAILY
  2. METOPROLOL. [Concomitant]
     Active Substance: METOPROLOL
     Indication: HYPERTENSION
  3. METOPROLOL. [Concomitant]
     Active Substance: METOPROLOL
     Indication: CARDIAC OPERATION
     Dosage: 50 MG, DAILY
  4. METOPROLOL. [Concomitant]
     Active Substance: METOPROLOL
     Indication: CARDIOMYOPATHY
  5. VYNDAMAX [Suspect]
     Active Substance: TAFAMIDIS
     Indication: AMYLOIDOSIS
     Dosage: 61 MG, DAILY
     Route: 048
     Dates: start: 2019

REACTIONS (4)
  - Ventricular extrasystoles [Unknown]
  - Memory impairment [Unknown]
  - Atrial fibrillation [Unknown]
  - Condition aggravated [Unknown]

NARRATIVE: CASE EVENT DATE: 2019
